FAERS Safety Report 4829886-3 (Version None)
Quarter: 2005Q4

REPORT INFORMATION
  Report Type: 
  Country: None (occurrence: None)
  Receive Date: 20051117
  Receipt Date: 20050901
  Transmission Date: 20060501
  Serious: Yes (Hospitalization)
  Sender: FDA-Public Use
  Company Number: JP-ABBOTT-05P-087-0310150-00

PATIENT
  Sex: Male
  Weight: 53.5 kg

DRUGS (4)
  1. CEFZON CAPSULES [Suspect]
     Indication: UPPER RESPIRATORY TRACT INFLAMMATION
     Route: 048
     Dates: start: 20050729, end: 20050801
  2. CEFZON CAPSULES [Suspect]
     Route: 048
  3. LOXOPROFEN SODIUM [Suspect]
     Indication: UPPER RESPIRATORY TRACT INFLAMMATION
     Route: 048
     Dates: start: 20050729, end: 20050801
  4. SERRAPEPTASE [Suspect]
     Indication: UPPER RESPIRATORY TRACT INFLAMMATION
     Route: 048
     Dates: start: 20050729, end: 20050801

REACTIONS (8)
  - ALANINE AMINOTRANSFERASE INCREASED [None]
  - ASPARTATE AMINOTRANSFERASE INCREASED [None]
  - BLOOD ALKALINE PHOSPHATASE INCREASED [None]
  - BLOOD BILIRUBIN INCREASED [None]
  - GAMMA-GLUTAMYLTRANSFERASE INCREASED [None]
  - INFECTIOUS MONONUCLEOSIS [None]
  - LIVER DISORDER [None]
  - PYREXIA [None]
